FAERS Safety Report 18683971 (Version 1)
Quarter: 2020Q4

REPORT INFORMATION
  Report Type: Spontaneous
  Country: IN (occurrence: IN)
  Receive Date: 20201230
  Receipt Date: 20201230
  Transmission Date: 20210114
  Serious: Yes (Other)
  Sender: FDA-Public Use
  Company Number: IN-FRESENIUS KABI-FK202014094

PATIENT
  Age: 53 Year
  Sex: Female

DRUGS (13)
  1. SODIUM LACTATE/POTASSIUM CHLORIDE/CALCIUM CHLORIDE [Concomitant]
     Active Substance: CALCIUM CHLORIDE\POTASSIUM CHLORIDE\SODIUM LACTATE
     Indication: PROCEDURAL HAEMORRHAGE
     Dosage: GIVEN TO TREAT BLOOD LOSS DURING CYTOREDUCTIVE SURGERY
     Route: 065
  2. PROPOFOL. [Concomitant]
     Active Substance: PROPOFOL
     Indication: INDUCTION OF ANAESTHESIA
     Route: 065
  3. NITROUS OXIDE. [Concomitant]
     Active Substance: NITROUS OXIDE
     Indication: MAINTENANCE OF ANAESTHESIA
     Dosage: LOW FLOW NITROUS OXIDE
     Route: 065
  4. VECURONIUM BROMIDE. [Concomitant]
     Active Substance: VECURONIUM BROMIDE
     Indication: INDUCTION OF ANAESTHESIA
     Route: 065
  5. VECURONIUM BROMIDE. [Concomitant]
     Active Substance: VECURONIUM BROMIDE
     Indication: MAINTENANCE OF ANAESTHESIA
     Route: 065
  6. OXYGEN. [Concomitant]
     Active Substance: OXYGEN
     Indication: MAINTENANCE OF ANAESTHESIA
     Route: 065
  7. FENTANYL. [Concomitant]
     Active Substance: FENTANYL
     Indication: ANALGESIC THERAPY
     Dosage: DURING HYPERTHERMIC INTRAPERITONEAL CHEMOTHERAPY (HIPEC)
     Route: 042
  8. SEVOFLURANE. [Concomitant]
     Active Substance: SEVOFLURANE
     Indication: MAINTENANCE OF ANAESTHESIA
     Route: 065
  9. RED BLOOD CELLS [Concomitant]
     Active Substance: HUMAN RED BLOOD CELL
     Indication: PROCEDURAL HAEMORRHAGE
     Dosage: GIVEN TO TREAT BLOOD LOSS DURING CYTOREDUCTIVE SURGERY
     Route: 065
  10. DOXORUBICIN (MANUFACTURER UNKNOWN) [Suspect]
     Active Substance: DOXORUBICIN
     Indication: OVARIAN CANCER
     Dosage: DOXORUBICIN PREPARED IN 5 PERCENT GLUCOSE [DEXTROSE] AS INTRAPERITONEAL DIALYSATE
     Route: 033
  11. FENTANYL. [Concomitant]
     Active Substance: FENTANYL
     Indication: INDUCTION OF ANAESTHESIA
     Dosage: DURING CYTOREDUCTIVE SURGERY
     Route: 065
  12. GLUCOSE [Suspect]
     Active Substance: DEXTROSE
     Indication: VEHICLE SOLUTION USE
     Dosage: DOXORUBICIN PREPARED IN 5 PERCENT GLUCOSE [DEXTROSE] AS INTRAPERITONEAL DIALYSATE
     Route: 033
  13. MORPHINE [Concomitant]
     Active Substance: MORPHINE
     Indication: ANALGESIC THERAPY
     Route: 065

REACTIONS (2)
  - Hyperglycaemia [Recovered/Resolved]
  - Metabolic acidosis [Recovered/Resolved]
